FAERS Safety Report 5733306-4 (Version None)
Quarter: 2008Q2

REPORT INFORMATION
  Report Type: 
  Country: None (occurrence: None)
  Receive Date: 20080509
  Receipt Date: 20080424
  Transmission Date: 20081010
  Serious: Yes (Other)
  Sender: FDA-Public Use
  Company Number: GB-GENENTECH-258883

PATIENT
  Sex: Male
  Weight: 90 kg

DRUGS (2)
  1. XOLAIR [Suspect]
     Indication: ASTHMA
     Dosage: 375 MG, Q2W
     Route: 058
  2. XOLAIR [Suspect]
     Dosage: 300 MG, 1/MONTH
     Route: 058

REACTIONS (3)
  - GOUT [None]
  - OEDEMA PERIPHERAL [None]
  - WEIGHT DECREASED [None]
